FAERS Safety Report 6509371-3 (Version None)
Quarter: 2009Q4

REPORT INFORMATION
  Report Type: 
  Country: None (occurrence: None)
  Receive Date: 20091217
  Receipt Date: 20091217
  Transmission Date: 20100525
  Serious: No
  Sender: FDA-Public Use
  Company Number: None

PATIENT
  Age: 46 Year
  Sex: Male
  Weight: 81.6475 kg

DRUGS (2)
  1. COLD REMEDY NASAL GEL [Suspect]
     Indication: INFECTION PROPHYLAXIS
     Dosage: QD(AT LEAST)
     Dates: start: 20081101, end: 20091101
  2. COLD REMEDY NASAL GEL SWABS [Suspect]
     Indication: INFECTION PROPHYLAXIS
     Dosage: QD(AT LEAST)
     Dates: start: 20081101, end: 20091101

REACTIONS (2)
  - AGEUSIA [None]
  - ANOSMIA [None]
